FAERS Safety Report 20082763 (Version 1)
Quarter: 2021Q4

REPORT INFORMATION
  Report Type: Spontaneous
  Country: US (occurrence: None)
  Receive Date: 20211117
  Receipt Date: 20211117
  Transmission Date: 20220303
  Serious: Yes (Life-Threatening, Hospitalization)
  Sender: FDA-Public Use
  Company Number: None

PATIENT
  Age: 58 Year
  Sex: Male
  Weight: 127.2 kg

DRUGS (23)
  1. ACTEMRA [Suspect]
     Active Substance: TOCILIZUMAB
     Indication: COVID-19
     Dosage: OTHER FREQUENCY : ONCE;?
     Route: 042
     Dates: start: 20211111, end: 20211111
  2. ACTEMRA [Suspect]
     Active Substance: TOCILIZUMAB
     Indication: COVID-19
     Dosage: OTHER FREQUENCY : ONCE;?
     Route: 042
     Dates: start: 20211111, end: 20211111
  3. ALBUTEROL\IPRATROPIUM [Concomitant]
     Active Substance: ALBUTEROL\IPRATROPIUM
     Dates: start: 20211110
  4. AMLODIPINE [Concomitant]
     Active Substance: AMLODIPINE BESYLATE
  5. ASPIRIN [Concomitant]
     Active Substance: ASPIRIN
     Dates: start: 20211111
  6. ATORVASTATIN [Concomitant]
     Active Substance: ATORVASTATIN
     Dates: start: 20211110
  7. CEFEPIME [Concomitant]
     Active Substance: CEFEPIME HYDROCHLORIDE
     Dates: start: 20211112
  8. CLOPIDOGREL [Concomitant]
     Active Substance: CLOPIDOGREL BISULFATE
     Dates: start: 20211111
  9. DEXAMETHASONE [Concomitant]
     Active Substance: DEXAMETHASONE
     Dates: start: 20211111
  10. ETOMIDATE [Concomitant]
     Active Substance: ETOMIDATE
     Dates: start: 20211116, end: 20211116
  11. FAMOTIDINE [Concomitant]
     Active Substance: FAMOTIDINE
     Dates: start: 20211116
  12. FENTANYL [Concomitant]
     Active Substance: FENTANYL
     Dates: start: 20211116
  13. FLUOXETINE [Concomitant]
     Active Substance: FLUOXETINE HYDROCHLORIDE
     Dates: start: 20211111
  14. GABAPENTIN [Concomitant]
     Active Substance: GABAPENTIN
     Dates: start: 20211111, end: 20211112
  15. HEPARIN [Concomitant]
     Active Substance: HEPARIN SODIUM
     Dates: start: 20211110
  16. HYDRALAZINE [Concomitant]
     Active Substance: HYDRALAZINE HYDROCHLORIDE
     Dates: start: 20211113, end: 20211115
  17. HYDROXYZINE [Concomitant]
     Active Substance: HYDROXYZINE HYDROCHLORIDE
     Dates: start: 20211113
  18. INSULIN ASPART [Concomitant]
     Active Substance: INSULIN ASPART
     Dates: start: 20211110
  19. INSULIN DETEMIR [Concomitant]
     Active Substance: INSULIN DETEMIR
     Dates: start: 20211110
  20. LABETALOL HYDROCHLORIDE [Concomitant]
     Active Substance: LABETALOL HYDROCHLORIDE
     Dates: start: 20211115
  21. NOREPINEPHRINE\NOREPINEPHRINE BITARTRATE [Concomitant]
     Active Substance: NOREPINEPHRINE\NOREPINEPHRINE BITARTRATE
     Dates: start: 202111
  22. VANCOMYCIN [Concomitant]
     Active Substance: VANCOMYCIN
     Dates: start: 20211112
  23. VECURONIUM [Concomitant]
     Active Substance: VECURONIUM BROMIDE
     Dates: start: 20211116

REACTIONS (7)
  - Acute respiratory failure [None]
  - Tachypnoea [None]
  - Condition aggravated [None]
  - Dyspnoea [None]
  - COVID-19 pneumonia [None]
  - Acute respiratory distress syndrome [None]
  - Malnutrition [None]

NARRATIVE: CASE EVENT DATE: 20211116
